FAERS Safety Report 6920921-5 (Version None)
Quarter: 2010Q3

REPORT INFORMATION
  Report Type: 
  Country: None (occurrence: None)
  Receive Date: 20100812
  Receipt Date: 20100803
  Transmission Date: 20110219
  Serious: Yes (Other)
  Sender: FDA-Public Use
  Company Number: US-ASTRAZENECA-2010SE22897

PATIENT
  Age: 91 Year
  Sex: Male
  Weight: 63 kg

DRUGS (6)
  1. CRESTOR [Suspect]
     Indication: HYPERCHOLESTEROLAEMIA
     Route: 048
     Dates: start: 20061101
  2. CRESTOR [Suspect]
     Indication: LIPIDS INCREASED
     Route: 048
     Dates: start: 20061101
  3. COUMADIN [Concomitant]
  4. TOPROL-XL [Concomitant]
     Indication: HYPERTENSION
     Route: 048
  5. PLAVIX [Concomitant]
     Route: 048
  6. NITROGLYCERIN [Concomitant]
     Indication: ANGINA PECTORIS
     Route: 062

REACTIONS (3)
  - BLOOD PRESSURE INCREASED [None]
  - DEEP VEIN THROMBOSIS [None]
  - DIZZINESS [None]
